FAERS Safety Report 24660714 (Version 1)
Quarter: 2024Q4

REPORT INFORMATION
  Report Type: Spontaneous
  Country: US (occurrence: US)
  Receive Date: 20241125
  Receipt Date: 20241125
  Transmission Date: 20250115
  Serious: No
  Sender: AVADEL CNS PHARMACEUTICALS, LLC
  Company Number: US-AVADEL CNS PHARMACEUTICALS, LLC-2024AVA02026

PATIENT
  Age: 49 Year
  Sex: Female

DRUGS (2)
  1. LUMRYZ [Suspect]
     Active Substance: SODIUM OXYBATE
     Dosage: 9 G
  2. LUMRYZ [Suspect]
     Active Substance: SODIUM OXYBATE
     Dosage: 9 G ^NOT EVERY NIGHT^

REACTIONS (12)
  - Cardiac disorder [Unknown]
  - Migraine [Unknown]
  - Cardiomegaly [Unknown]
  - Sleep terror [Unknown]
  - Middle insomnia [Unknown]
  - Intentional dose omission [Unknown]
  - Presyncope [Unknown]
  - Blood pressure increased [Unknown]
  - Pain [Unknown]
  - Sleep paralysis [Unknown]
  - Pain in extremity [Unknown]
  - Memory impairment [Unknown]

NARRATIVE: CASE EVENT DATE: 20240901
